FAERS Safety Report 5913072-X (Version None)
Quarter: 2008Q4

REPORT INFORMATION
  Report Type: 
  Country: None (occurrence: None)
  Receive Date: 20081008
  Receipt Date: 20081008
  Transmission Date: 20090506
  Serious: Yes (Other)
  Sender: FDA-Public Use
  Company Number: None

PATIENT
  Sex: Male
  Weight: 74.8435 kg

DRUGS (5)
  1. OXCARBAZEPINE [Suspect]
     Indication: EPILEPSY
     Dosage: 300 + 450 MG AM + PM P.O.
     Route: 048
     Dates: start: 20000101
  2. KEPPRA [Concomitant]
  3. AMLODIPINE [Concomitant]
  4. RISPERDAL [Concomitant]
  5. METAPROLOL [Concomitant]

REACTIONS (6)
  - BLOOD PRESSURE INCREASED [None]
  - CHEST PAIN [None]
  - CONVULSION [None]
  - PRURITUS GENERALISED [None]
  - RECTAL HAEMORRHAGE [None]
  - SOMNOLENCE [None]
